FAERS Safety Report 6156166-9 (Version None)
Quarter: 2009Q2

REPORT INFORMATION
  Report Type: 
  Country: None (occurrence: None)
  Receive Date: 20090413
  Receipt Date: 20090413
  Transmission Date: 20091009
  Serious: Yes (Other)
  Sender: FDA-Public Use
  Company Number: None

PATIENT
  Age: 41 Year
  Sex: Female
  Weight: 79.8331 kg

DRUGS (7)
  1. VOLTAREN [Suspect]
     Indication: TENDONITIS
     Dosage: 2G - 4G  1-2 TIMES DAY TRANSDERMAL
     Route: 062
     Dates: start: 20090313, end: 20090405
  2. LYRICA [Concomitant]
  3. PROVIGIL [Concomitant]
  4. XYREM [Concomitant]
  5. ULTRAM ER [Concomitant]
  6. PREVPAC: PEPCID, AMOXICILLIN, BIAXIN [Concomitant]
  7. ALBUTEROL [Concomitant]

REACTIONS (6)
  - CHEST PAIN [None]
  - ELECTROCARDIOGRAM ST SEGMENT DEPRESSION [None]
  - HEART RATE IRREGULAR [None]
  - LEFT VENTRICULAR FAILURE [None]
  - RIGHT VENTRICULAR FAILURE [None]
  - TACHYCARDIA [None]
